FAERS Safety Report 4619690-3 (Version None)
Quarter: 2005Q1

REPORT INFORMATION
  Report Type: 
  Country: None (occurrence: None)
  Receive Date: 20050317
  Receipt Date: 20050317
  Transmission Date: 20050727
  Serious: Yes (Hospitalization)
  Sender: FDA-Public Use
  Company Number: None

PATIENT
  Age: 60 Year
  Sex: Male
  Weight: 53 kg

DRUGS (9)
  1. NAPROXEN [Suspect]
     Indication: ARTHRITIS
     Dosage: 500MG   BID   ORAL
     Route: 048
     Dates: start: 20041020, end: 20041108
  2. HYDROCHLOROTHIAZIDE [Concomitant]
  3. ZANTAC [Concomitant]
  4. IRON SULFATETHIAMIN COMPOUND TAB [Concomitant]
  5. MULTI-VITAMIN [Concomitant]
  6. BENADRYL [Concomitant]
  7. ASPIRIN [Concomitant]
  8. DOCUSATE [Concomitant]
  9. LORATADINE [Concomitant]

REACTIONS (3)
  - ABDOMINAL PAIN [None]
  - DUODENAL ULCER [None]
  - IRON DEFICIENCY ANAEMIA [None]
